FAERS Safety Report 9164986 (Version 2)
Quarter: 2013Q2

REPORT INFORMATION
  Report Type: Spontaneous
  Country: US (occurrence: None)
  Receive Date: 20130226
  Receipt Date: 20130503
  Transmission Date: 20140414
  Serious: Yes (Hospitalization, Other)
  Sender: FDA-Public Use
  Company Number: VAL_01425_2013

PATIENT
  Age: 60 Year
  Sex: Male

DRUGS (8)
  1. METOPROLOL [Suspect]
     Indication: PRODUCT USED FOR UNKNOWN INDICATION
  2. LIDOCAINE [Suspect]
     Indication: LOCAL ANAESTHESIA
     Dosage: (5% DAILY TO THE OROPHARYNX (REGIMEN #1) TOPICAL),
  3. LIDOCAINE [Suspect]
     Indication: LOCAL ANAESTHESIA
     Dosage: (TOPICAL)
  4. WARFARIN [Concomitant]
  5. LISINOPRIL [Concomitant]
  6. DOCUSATE SODIUM [Concomitant]
  7. POTASSIUM CHLORIDE [Concomitant]
  8. FUROSEMIDE [Concomitant]

REACTIONS (6)
  - Toxicity to various agents [None]
  - Ataxia [None]
  - Diplopia [None]
  - Heart rate irregular [None]
  - Local swelling [None]
  - Drug clearance decreased [None]
